FAERS Safety Report 9263433 (Version 1)
Quarter: 2013Q2

REPORT INFORMATION
  Report Type: Spontaneous
  Country: US (occurrence: US)
  Receive Date: 20130430
  Receipt Date: 20130430
  Transmission Date: 20140414
  Serious: No
  Sender: FDA-Public Use
  Company Number: US-ABBOTT-12P-163-0931343-00

PATIENT
  Age: 83 Year
  Sex: Male
  Weight: 65.83 kg

DRUGS (3)
  1. CREON [Suspect]
     Indication: ENZYME SUPPLEMENTATION
     Dates: start: 20120419
  2. MAXZIDE [Concomitant]
     Indication: DIURETIC THERAPY
  3. PRILOSEC [Concomitant]
     Indication: GASTROOESOPHAGEAL REFLUX DISEASE

REACTIONS (1)
  - Fatigue [Not Recovered/Not Resolved]
